FAERS Safety Report 4869157-2 (Version None)
Quarter: 2005Q4

REPORT INFORMATION
  Report Type: 
  Country: None (occurrence: None)
  Receive Date: 20051228
  Receipt Date: 20051228
  Transmission Date: 20060501
  Serious: Yes (Life-Threatening)
  Sender: FDA-Public Use
  Company Number: None

PATIENT
  Age: 64 Year
  Sex: Female
  Weight: 87.5442 kg

DRUGS (4)
  1. PREDNISONE [Suspect]
     Indication: ASTHMA
     Dosage: 1-2X /DAY AS NEEDED
     Dates: start: 20051203, end: 20051206
  2. PREDNISONE [Suspect]
     Indication: BRONCHIAL HYPERACTIVITY
     Dosage: 1-2X /DAY AS NEEDED
     Dates: start: 20051203, end: 20051206
  3. PREDNISONE [Suspect]
     Indication: LATEX ALLERGY
     Dosage: 1-2X /DAY AS NEEDED
     Dates: start: 20051203, end: 20051206
  4. BENADRYL [Concomitant]

REACTIONS (5)
  - DYSPNOEA [None]
  - HYPERVENTILATION [None]
  - OXYGEN SATURATION DECREASED [None]
  - RESPIRATORY RATE DECREASED [None]
  - TRACHEAL DISORDER [None]
